FAERS Safety Report 4355429-7 (Version None)
Quarter: 2004Q2

REPORT INFORMATION
  Report Type: 
  Country: None (occurrence: None)
  Receive Date: 20040504
  Receipt Date: 20040421
  Transmission Date: 20050107
  Serious: Yes (Hospitalization)
  Sender: FDA-Public Use
  Company Number: CA-JNJFOC-20031204379

PATIENT
  Age: 47 Year
  Sex: Female
  Weight: 49.2 kg

DRUGS (10)
  1. REMICADE [Suspect]
     Indication: RHEUMATOID ARTHRITIS
     Dosage: 200 MG, INTRAVENOUS; SEE IMAGE
     Route: 042
     Dates: start: 20040325, end: 20040325
  2. REMICADE [Suspect]
     Indication: RHEUMATOID ARTHRITIS
     Dosage: 200 MG, INTRAVENOUS; SEE IMAGE
     Route: 042
     Dates: start: 20020909
  3. REMICADE [Suspect]
     Indication: RHEUMATOID ARTHRITIS
     Dosage: 200 MG, INTRAVENOUS; SEE IMAGE
     Route: 042
     Dates: start: 20031124
  4. REMICADE [Suspect]
     Indication: RHEUMATOID ARTHRITIS
     Dosage: 200 MG, INTRAVENOUS; SEE IMAGE
     Route: 042
     Dates: start: 20040119
  5. PREDNISONE [Concomitant]
  6. MTX (METHOTREXATE SODIUM) TABLETS [Concomitant]
  7. FOSAMAX [Concomitant]
  8. CARBOCAL D (TUMS ; OLD FORM; ) [Concomitant]
  9. DURICEF [Concomitant]
  10. CALCIUM (CALCIUM) [Concomitant]

REACTIONS (4)
  - CELLULITIS [None]
  - IMMUNOSUPPRESSION [None]
  - LYMPHANGITIS [None]
  - STREPTOCOCCAL SEPSIS [None]
